FAERS Safety Report 4370230-6 (Version None)
Quarter: 2004Q2

REPORT INFORMATION
  Report Type: 
  Country: None (occurrence: None)
  Receive Date: 20040603
  Receipt Date: 20040319
  Transmission Date: 20050107
  Serious: No
  Sender: FDA-Public Use
  Company Number: US-BRISTOL-MYERS SQUIBB COMPANY-12538229

PATIENT
  Age: 38 Year
  Sex: Female
  Weight: 91 kg

DRUGS (6)
  1. ABILIFY [Suspect]
     Indication: DEPRESSION
     Dosage: 1 DOSE TAKEN 19-MAR-04, DRUG INTERRUPTED. RECHALLENGE NOT CONFIRMED.
     Dates: start: 20040319
  2. ZANTAC [Concomitant]
  3. VERAPAMIL [Concomitant]
  4. EFFEXOR [Concomitant]
  5. LAMICTAL [Concomitant]
  6. SEROQUEL [Concomitant]

REACTIONS (1)
  - PAIN [None]
